FAERS Safety Report 17276055 (Version 1)
Quarter: 2020Q1

REPORT INFORMATION
  Report Type: Spontaneous
  Country: DZ (occurrence: DZ)
  Receive Date: 20200116
  Receipt Date: 20200116
  Transmission Date: 20200409
  Serious: Yes (Other)
  Sender: FDA-Public Use
  Company Number: DZ-ROCHE-2518533

PATIENT
  Age: 35 Year
  Sex: Female

DRUGS (1)
  1. ACTEMRA [Suspect]
     Active Substance: TOCILIZUMAB
     Indication: PRODUCT USED FOR UNKNOWN INDICATION
     Dosage: THE PATIENT RECEIVED 4 CURE OF ACTEMRA
     Route: 065

REACTIONS (3)
  - Metastases to peritoneum [Unknown]
  - Ovarian mass [Unknown]
  - Bone cancer [Unknown]
